FAERS Safety Report 14815723 (Version 3)
Quarter: 2018Q2

REPORT INFORMATION
  Report Type: Spontaneous
  Country: LB (occurrence: LB)
  Receive Date: 20180426
  Receipt Date: 20180618
  Transmission Date: 20180711
  Serious: Yes (Hospitalization, Other)
  Sender: FDA-Public Use
  Company Number: LB-GLAXOSMITHKLINE-LB2018GSK072599

PATIENT
  Age: 54 Year
  Sex: Male

DRUGS (4)
  1. CONCOR 5 PLUS [Concomitant]
     Indication: HYPERTENSION
     Dosage: 1 DF(TABLET), 1D
     Route: 048
  2. ANORO ELLIPTA [Suspect]
     Active Substance: UMECLIDINIUM BROMIDE\VILANTEROL TRIFENATATE
     Indication: CHRONIC OBSTRUCTIVE PULMONARY DISEASE
     Dosage: 1 PUFF(S), 1D
     Route: 055
     Dates: start: 20180421
  3. FLUIBRON [Concomitant]
     Active Substance: AMBROXOL HYDROCHLORIDE
     Indication: PRODUCTIVE COUGH
     Dosage: 15 ML, QID
     Route: 048
     Dates: start: 20180421, end: 20180424
  4. CONCOR 5 PLUS [Concomitant]
     Indication: TACHYCARDIA

REACTIONS (4)
  - Pneumonia [Not Recovered/Not Resolved]
  - Pyrexia [Not Recovered/Not Resolved]
  - Haemoptysis [Unknown]
  - Lung neoplasm malignant [Unknown]

NARRATIVE: CASE EVENT DATE: 20180424
